FAERS Safety Report 9607425 (Version 1)
Quarter: 2013Q4

REPORT INFORMATION
  Report Type: Spontaneous
  Country: US (occurrence: None)
  Receive Date: 20131004
  Receipt Date: 20131004
  Transmission Date: 20140711
  Serious: Yes (Other)
  Sender: FDA-Public Use
  Company Number: 1912730

PATIENT
  Age: 67 Year
  Sex: Male
  Weight: 113.64 kg

DRUGS (15)
  1. VANCOMYCIN HYDROCHLORIDE [Suspect]
     Indication: CELLULITIS
     Dosage: 1 HOUR
     Route: 041
     Dates: start: 20130816, end: 20130816
  2. STERILE WATER [Suspect]
     Dosage: 1 HOUR
     Route: 041
     Dates: start: 20130816, end: 20130816
  3. (ATENOLOL) [Concomitant]
  4. (DEMADEX /01036501/) [Concomitant]
  5. (LOVASTATIN) [Concomitant]
  6. (MAGNESIUM) [Concomitant]
  7. (NEXIUM /01479302/) [Concomitant]
  8. (OXAPROZIN) [Concomitant]
  9. (POTASSIUM) [Concomitant]
  10. (VITAMIN C /00008001/) [Concomitant]
  11. (VITAMIN D3) [Concomitant]
  12. (SILENIUM) [Concomitant]
  13. (LORATADINE) [Concomitant]
  14. (ASPIRIN) [Concomitant]
  15. (CIALIS) [Concomitant]

REACTIONS (1)
  - Anaphylactic reaction [None]
